FAERS Safety Report 5541518-8 (Version None)
Quarter: 2007Q4

REPORT INFORMATION
  Report Type: 
  Country: None (occurrence: None)
  Receive Date: 20071210
  Receipt Date: 20071130
  Transmission Date: 20080405
  Serious: Yes (Life-Threatening, Hospitalization)
  Sender: FDA-Public Use
  Company Number: PHBS2005US00800

PATIENT
  Age: 8 Year
  Sex: Male

DRUGS (2)
  1. TEGRETOL [Suspect]
     Indication: CONVULSION
     Dosage: 300 MG/DAY
     Route: 065
  2. BACLOFEN [Suspect]
     Indication: MUSCLE SPASTICITY
     Dosage: 190 UG, Q6H
     Route: 037

REACTIONS (7)
  - ARNOLD-CHIARI MALFORMATION [None]
  - DROOLING [None]
  - DYSARTHRIA [None]
  - FACIAL PALSY [None]
  - HYPOKINESIA [None]
  - JOINT CONTRACTURE [None]
  - SURGERY [None]
